FAERS Safety Report 6373183-4 (Version None)
Quarter: 2009Q3

REPORT INFORMATION
  Report Type: 
  Country: None (occurrence: None)
  Receive Date: 20090924
  Receipt Date: 20090112
  Transmission Date: 20100115
  Serious: No
  Sender: FDA-Public Use
  Company Number: US-ASTRAZENECA-2009UW00989

PATIENT
  Sex: Male

DRUGS (4)
  1. SEROQUEL XR [Suspect]
     Indication: BIPOLAR DISORDER
     Dosage: 300 MG
     Route: 048
     Dates: start: 20080701
  2. DIVALPROEX SODIUM [Concomitant]
  3. PROZAC [Concomitant]
     Dosage: 10 MG
     Route: 048
  4. KLONOPIN [Concomitant]

REACTIONS (1)
  - BIPOLAR DISORDER [None]
